FAERS Safety Report 8030397-5 (Version None)
Quarter: 2012Q1

REPORT INFORMATION
  Report Type: 
  Country: None (occurrence: None)
  Receive Date: 20120105
  Receipt Date: 20111221
  Transmission Date: 20120608
  Serious: Yes (Other)
  Sender: FDA-Public Use
  Company Number: GB-DEXPHARM-20110323

PATIENT
  Age: 33 Year
  Sex: Male

DRUGS (1)
  1. OMEPRAZOLE [Suspect]
     Dosage: 20 MG MILLGRAM(S) SEP. DOSAGES/INTERVAL: 1 IN 1 DAY
     Dates: start: 20101231

REACTIONS (2)
  - PANCREATITIS [None]
  - CHOLELITHIASIS [None]
